FAERS Safety Report 13068602 (Version 1)
Quarter: 2016Q4

REPORT INFORMATION
  Report Type: Spontaneous
  Country: JP (occurrence: JP)
  Receive Date: 20161228
  Receipt Date: 20161228
  Transmission Date: 20170207
  Serious: Yes (Other)
  Sender: FDA-Public Use
  Company Number: JP-CELGENEUS-JPN-2016124958

PATIENT
  Age: 77 Year
  Sex: Male

DRUGS (3)
  1. VIDAZA [Suspect]
     Active Substance: AZACITIDINE
     Dosage: 75MG/M^2
     Route: 065
  2. VIDAZA [Suspect]
     Active Substance: AZACITIDINE
     Dosage: 75MG/M^2
     Route: 065
  3. VIDAZA [Suspect]
     Active Substance: AZACITIDINE
     Indication: PRODUCT USED FOR UNKNOWN INDICATION
     Dosage: 75MG/M^2
     Route: 065

REACTIONS (2)
  - Pyrexia [Recovered/Resolved]
  - Hypoxia [Recovered/Resolved]
